FAERS Safety Report 9314519 (Version 6)
Quarter: 2013Q3

REPORT INFORMATION
  Report Type: Spontaneous
  Country: DK (occurrence: DK)
  Receive Date: 20130529
  Receipt Date: 20130718
  Transmission Date: 20140515
  Serious: Yes (Other)
  Sender: FDA-Public Use
  Company Number: DK-PFIZER INC-2013159583

PATIENT
  Age: 44 Year
  Sex: Female

DRUGS (17)
  1. EPIRUBICIN HCL [Suspect]
     Indication: BREAST CANCER
     Dosage: UNK
     Route: 065
  2. GEMCITABINE HYDROCHLORIDE [Suspect]
     Indication: BREAST CANCER
     Dosage: UNK
     Route: 065
  3. VINORELBINE [Suspect]
     Indication: BREAST CANCER
     Route: 065
  4. VINORELBINE [Suspect]
     Indication: PRODUCT USED FOR UNKNOWN INDICATION
  5. DOCETAXEL [Suspect]
     Indication: BREAST CANCER
     Dosage: UNK
  6. HERCEPTIN [Suspect]
     Indication: BREAST CANCER
     Dosage: UNK
     Dates: start: 200512, end: 20130307
  7. HERCEPTIN [Suspect]
     Dosage: UNK
     Dates: start: 201104
  8. HERCEPTIN [Suspect]
     Dosage: UNK
     Dates: start: 201210, end: 20130307
  9. HERCEPTIN [Suspect]
     Dosage: UNK
     Route: 065
     Dates: start: 20130429
  10. XELODA [Suspect]
     Indication: BREAST CANCER
     Dosage: UNK
  11. LAPATINIB [Suspect]
     Indication: BREAST CANCER
     Dosage: UNK
     Route: 065
  12. TAXOL [Suspect]
     Indication: BREAST CANCER
     Dosage: UNK
  13. ZOLADEX [Suspect]
     Indication: BREAST CANCER
     Dosage: UNK
  14. FEMAR [Suspect]
     Indication: BREAST CANCER
     Dosage: UNK
     Route: 065
  15. TAMOXIFEN [Concomitant]
     Dosage: UNK
  16. PANTOPRAZOLE [Concomitant]
     Dosage: UNK
     Dates: start: 20121221
  17. CONTALGIN [Concomitant]
     Dosage: UNK
     Dates: start: 20130605

REACTIONS (4)
  - Pericarditis [Not Recovered/Not Resolved]
  - Pleural effusion [Unknown]
  - Disease progression [Unknown]
  - Breast cancer metastatic [Unknown]
